FAERS Safety Report 15349714 (Version 1)
Quarter: 2018Q3

REPORT INFORMATION
  Report Type: Spontaneous
  Country: BR (occurrence: BR)
  Receive Date: 20180904
  Receipt Date: 20180904
  Transmission Date: 20181010
  Serious: Yes (Hospitalization)
  Sender: FDA-Public Use
  Company Number: BR-NOVOPROD-618585

PATIENT
  Sex: Male

DRUGS (1)
  1. NOVORAPID [Suspect]
     Active Substance: INSULIN ASPART
     Indication: PRODUCT USED FOR UNKNOWN INDICATION
     Dosage: WITH INFUSION BOMB
     Route: 065

REACTIONS (4)
  - Drug ineffective [Unknown]
  - Diabetic ketoacidosis [Unknown]
  - Blood glucose abnormal [Unknown]
  - Cholelithiasis [Unknown]
